FAERS Safety Report 15140531 (Version 2)
Quarter: 2018Q3

REPORT INFORMATION
  Report Type: Spontaneous
  Country: US (occurrence: US)
  Receive Date: 20180713
  Receipt Date: 20180914
  Transmission Date: 20181010
  Serious: No
  Sender: FDA-Public Use
  Company Number: US-BAYER-2018-127873

PATIENT
  Age: 70 Year
  Sex: Male
  Weight: 96.6 kg

DRUGS (8)
  1. NOPRON [Concomitant]
     Active Substance: NIAPRAZINE
  2. VITAMIN A [Concomitant]
     Active Substance: VITAMIN A
  3. DAILY VITAMINS [Concomitant]
  4. GADAVIST [Suspect]
     Active Substance: GADOBUTROL
     Indication: NUCLEAR MAGNETIC RESONANCE IMAGING BRAIN
     Dosage: 9 ML, ONCE
     Route: 042
     Dates: start: 20180628, end: 20180628
  5. GADAVIST [Suspect]
     Active Substance: GADOBUTROL
     Indication: PITUITARY TUMOUR
  6. NOVITRA [Concomitant]
  7. GUAIFENESIN. [Concomitant]
     Active Substance: GUAIFENESIN
     Indication: MALAISE
  8. VITAMIN C [Concomitant]
     Active Substance: ASCORBIC ACID

REACTIONS (10)
  - Arthralgia [Not Recovered/Not Resolved]
  - Fatigue [None]
  - Therapeutic response unexpected [None]
  - Pruritus [Not Recovered/Not Resolved]
  - Pruritus [Recovered/Resolved]
  - Hypersomnia [None]
  - Insomnia [None]
  - Pain in extremity [None]
  - Feeling abnormal [Recovered/Resolved]
  - Burning sensation [Recovered/Resolved]

NARRATIVE: CASE EVENT DATE: 2018
